FAERS Safety Report 9470420 (Version 2)
Quarter: 2013Q3

REPORT INFORMATION
  Report Type: Spontaneous
  Country: DE (occurrence: DE)
  Receive Date: 20130822
  Receipt Date: 20130913
  Transmission Date: 20140515
  Serious: Yes (Death, Hospitalization)
  Sender: FDA-Public Use
  Company Number: DE-B.I. PHARMACEUTICALS,INC./RIDGEFIELD-2013-BI-25944DE

PATIENT
  Age: 90 Year
  Sex: Male
  Weight: 85 kg

DRUGS (4)
  1. PRADAXA [Suspect]
  2. VERAPAMIL [Concomitant]
  3. TORASEMID [Concomitant]
  4. TAMSULOSIN [Concomitant]

REACTIONS (3)
  - Melaena [Fatal]
  - Vomiting [Fatal]
  - Oesophageal rupture [Fatal]
